FAERS Safety Report 6073931-7 (Version None)
Quarter: 2009Q1

REPORT INFORMATION
  Report Type: 
  Country: None (occurrence: None)
  Receive Date: 20090211
  Receipt Date: 20090202
  Transmission Date: 20090719
  Serious: Yes (Other)
  Sender: FDA-Public Use
  Company Number: PHEH2009US01428

PATIENT
  Sex: Male

DRUGS (5)
  1. DIOVAN HCT [Suspect]
     Indication: HYPERTENSION
  2. ACTOS [Suspect]
     Indication: TYPE 2 DIABETES MELLITUS
  3. METFORMIN HCL [Suspect]
     Indication: TYPE 2 DIABETES MELLITUS
  4. GLYBURIDE [Suspect]
     Indication: TYPE 2 DIABETES MELLITUS
  5. LIPITOR [Suspect]
     Indication: BLOOD CHOLESTEROL

REACTIONS (7)
  - DIZZINESS POSTURAL [None]
  - DYSSTASIA [None]
  - GAIT DISTURBANCE [None]
  - MUSCLE SPASMS [None]
  - SKIN DISORDER [None]
  - VITAMIN B12 DECREASED [None]
  - WALKING AID USER [None]
